FAERS Safety Report 6923262-5 (Version None)
Quarter: 2010Q3

REPORT INFORMATION
  Report Type: 
  Country: None (occurrence: None)
  Receive Date: 20100813
  Receipt Date: 20100804
  Transmission Date: 20110219
  Serious: Yes (Hospitalization)
  Sender: FDA-Public Use
  Company Number: US-ROCHE-719820

PATIENT
  Sex: Male
  Weight: 88 kg

DRUGS (3)
  1. CAPECITABINE [Suspect]
     Indication: METASTATIC GASTRIC CANCER
     Dosage: FREQUENCY: DAY 1-DAY 14 EACH CYCLE TWICE DAILY
     Route: 048
     Dates: start: 20090821, end: 20100625
  2. OXALIPLATIN [Suspect]
     Indication: METASTATIC GASTRIC CANCER
     Dosage: FREQUENCY: DAY 1
     Route: 042
     Dates: start: 20090821, end: 20100625
  3. CETUXIMAB [Suspect]
     Indication: METASTATIC GASTRIC CANCER
     Dosage: FREQUENCY: DAY 1 , 8 AND 15 EACH CYCLE
     Route: 042
     Dates: start: 20090821, end: 20100625

REACTIONS (8)
  - ALANINE AMINOTRANSFERASE INCREASED [None]
  - ASPARTATE AMINOTRANSFERASE INCREASED [None]
  - BILE DUCT OBSTRUCTION [None]
  - BLOOD BILIRUBIN ABNORMAL [None]
  - BLOOD BILIRUBIN INCREASED [None]
  - MALIGNANT NEOPLASM PROGRESSION [None]
  - PRURITUS [None]
  - YELLOW SKIN [None]
